FAERS Safety Report 7339033-4 (Version None)
Quarter: 2011Q1

REPORT INFORMATION
  Report Type: 
  Country: None (occurrence: None)
  Receive Date: 20110308
  Receipt Date: 20110223
  Transmission Date: 20110831
  Serious: Yes (Hospitalization)
  Sender: FDA-Public Use
  Company Number: FR-ELI_LILLY_AND_COMPANY-FR201103000101

PATIENT
  Sex: Female

DRUGS (2)
  1. COPAXONE [Concomitant]
     Route: 058
     Dates: start: 20080325, end: 20080407
  2. CYMBALTA [Suspect]
     Dosage: UNK, UNK
     Route: 048
     Dates: start: 20080331, end: 20080403

REACTIONS (2)
  - URTICARIA [None]
  - LIP OEDEMA [None]
